FAERS Safety Report 13835087 (Version 1)
Quarter: 2017Q3

REPORT INFORMATION
  Report Type: Spontaneous
  Country: None (occurrence: US)
  Receive Date: 20170804
  Receipt Date: 20170804
  Transmission Date: 20171127
  Serious: Yes (Hospitalization)
  Sender: FDA-Public Use
  Company Number: None

PATIENT
  Age: 36 Year
  Sex: Female
  Weight: 82.8 kg

DRUGS (3)
  1. TAXOL [Suspect]
     Active Substance: PACLITAXEL
     Dates: end: 20170626
  2. CISPLATIN. [Suspect]
     Active Substance: CISPLATIN
     Dates: end: 20170308
  3. CARBOPLATIN. [Suspect]
     Active Substance: CARBOPLATIN
     Dates: end: 20170626

REACTIONS (16)
  - Ovarian enlargement [None]
  - White blood cell count increased [None]
  - Pyometra [None]
  - Abdominal pain [None]
  - Uterine enlargement [None]
  - Diarrhoea [None]
  - Blood creatinine increased [None]
  - Dysuria [None]
  - Back pain [None]
  - Pyrexia [None]
  - Hydronephrosis [None]
  - Hypotension [None]
  - Sepsis [None]
  - Acute kidney injury [None]
  - Salpingitis [None]
  - Myalgia [None]

NARRATIVE: CASE EVENT DATE: 20170717
